FAERS Safety Report 8501741-7 (Version None)
Quarter: 2012Q3

REPORT INFORMATION
  Report Type: 
  Country: None (occurrence: None)
  Receive Date: 20120711
  Receipt Date: 20120706
  Transmission Date: 20120928
  Serious: No
  Sender: FDA-Public Use
  Company Number: US-BIOGENIDEC-2012BI024008

PATIENT
  Age: 30 Year
  Sex: Female

DRUGS (1)
  1. TYSABRI [Suspect]
     Indication: MULTIPLE SCLEROSIS
     Route: 042
     Dates: start: 20100519

REACTIONS (4)
  - VAGINAL LESION [None]
  - PAIN [None]
  - STOMATITIS [None]
  - SKIN LESION [None]
